FAERS Safety Report 5355009-0 (Version None)
Quarter: 2007Q2

REPORT INFORMATION
  Report Type: 
  Country: None (occurrence: None)
  Receive Date: 20070521
  Receipt Date: 20070402
  Transmission Date: 20071010
  Serious: No
  Sender: FDA-Public Use
  Company Number: WAES 0704USA00340

PATIENT
  Age: 58 Year
  Sex: Male

DRUGS (5)
  1. JANUVIA [Suspect]
     Indication: DIABETES MELLITUS
     Dosage: 100 MG/DAILY/PO
     Route: 048
     Dates: start: 20070223
  2. ATACAND [Concomitant]
  3. AVANDAMET [Concomitant]
  4. LIPITOR [Concomitant]
  5. STARLIX [Concomitant]

REACTIONS (3)
  - NASAL CONGESTION [None]
  - PHARYNGOLARYNGEAL PAIN [None]
  - SINUS HEADACHE [None]
